FAERS Safety Report 5422063-7 (Version None)
Quarter: 2007Q3

REPORT INFORMATION
  Report Type: 
  Country: None (occurrence: None)
  Receive Date: 20070820
  Receipt Date: 20070803
  Transmission Date: 20080115
  Serious: Yes (Hospitalization)
  Sender: FDA-Public Use
  Company Number: 100#03#2007-02962

PATIENT
  Age: 39 Year
  Sex: Male

DRUGS (3)
  1. AMITRIPTLINE HCL [Suspect]
     Indication: DRUG USE FOR UNKNOWN INDICATION
  2. DOMPERIDONE (DOMPERIDONE) (DOMPERIDONE) [Suspect]
     Indication: DRUG USE FOR UNKNOWN INDICATION
  3. OXYCODONE (OXYCODONE) (OXYCODONE) [Suspect]
     Indication: DRUG USE FOR UNKNOWN INDICATION

REACTIONS (14)
  - ABNORMAL BEHAVIOUR [None]
  - AGITATION [None]
  - ANXIETY [None]
  - CELLULITIS [None]
  - CHOREA [None]
  - CONFUSIONAL STATE [None]
  - DISORIENTATION [None]
  - DRUG TOXICITY [None]
  - DYSKINESIA [None]
  - HALLUCINATION [None]
  - MOVEMENT DISORDER [None]
  - MYOCLONUS [None]
  - RESTLESSNESS [None]
  - SCROTAL OEDEMA [None]
